FAERS Safety Report 15569880 (Version 5)
Quarter: 2019Q3

REPORT INFORMATION
  Report Type: Spontaneous
  Country: US (occurrence: US)
  Receive Date: 20181031
  Receipt Date: 20190811
  Transmission Date: 20191004
  Serious: Yes (Death, Other)
  Sender: FDA-Public Use
  Company Number: PHHY2018US141911

PATIENT
  Sex: Female

DRUGS (2)
  1. AFINITOR [Suspect]
     Active Substance: EVEROLIMUS
     Indication: BREAST CANCER FEMALE
     Dosage: 7.5 MG, QD
     Route: 048
     Dates: start: 20150523
  2. EXEMESTANE. [Suspect]
     Active Substance: EXEMESTANE
     Indication: BREAST CANCER FEMALE
     Dosage: 25 MG, QD
     Route: 048
     Dates: start: 20150523

REACTIONS (7)
  - Second primary malignancy [Unknown]
  - Lung neoplasm malignant [Unknown]
  - Acne [Unknown]
  - Death [Fatal]
  - Condition aggravated [Unknown]
  - Feeling abnormal [Unknown]
  - Malaise [Unknown]
